FAERS Safety Report 10538182 (Version 1)
Quarter: 2014Q4

REPORT INFORMATION
  Report Type: Other
  Country: GB (occurrence: GB)
  Receive Date: 20141023
  Receipt Date: 20141023
  Transmission Date: 20150529
  Serious: Yes (Death, Hospitalization, Disabling)
  Sender: FDA-Public Use
  Company Number: GB-MYLANLABS-2014M1007193

PATIENT

DRUGS (7)
  1. LENOGRASTIM [Concomitant]
     Active Substance: LENOGRASTIM
     Indication: PRODUCT USED FOR UNKNOWN INDICATION
     Dosage: 263 MG, UNK
     Dates: start: 20140818
  2. CODEINE PHOSPHATE [Suspect]
     Active Substance: CODEINE PHOSPHATE
     Indication: PRODUCT USED FOR UNKNOWN INDICATION
     Dosage: UNK
  3. HERCEPTIN [Concomitant]
     Active Substance: TRASTUZUMAB
     Indication: BREAST CANCER METASTATIC
     Dosage: 347 MG, Q3W
     Route: 042
     Dates: start: 201407
  4. CAPECITABINE. [Suspect]
     Active Substance: CAPECITABINE
     Indication: BREAST CANCER METASTATIC
     Dosage: 1500 MG, BID
     Route: 048
     Dates: start: 2014
  5. CLOZAPINE. [Concomitant]
     Active Substance: CLOZAPINE
     Dosage: 250 MG, UNK
  6. LANSOPRAZOLE. [Concomitant]
     Active Substance: LANSOPRAZOLE
     Indication: PRODUCT USED FOR UNKNOWN INDICATION
  7. CLOZAPINE. [Concomitant]
     Active Substance: CLOZAPINE
     Indication: SCHIZOPHRENIA
     Dosage: 225 MG, UNK

REACTIONS (19)
  - Coma [Not Recovered/Not Resolved]
  - Fluid retention [Unknown]
  - Dysphagia [Not Recovered/Not Resolved]
  - Asthenia [Unknown]
  - Gait disturbance [Unknown]
  - Weight decreased [Unknown]
  - Metabolic acidosis [Fatal]
  - Dyspnoea [Not Recovered/Not Resolved]
  - Liver function test abnormal [Unknown]
  - Pulmonary oedema [Not Recovered/Not Resolved]
  - Fatigue [Unknown]
  - Fall [Unknown]
  - Seizure [Unknown]
  - Peripheral swelling [Not Recovered/Not Resolved]
  - Acute kidney injury [Unknown]
  - Diarrhoea [Recovered/Resolved]
  - Prescribed overdose [Unknown]
  - Oral candidiasis [Unknown]
  - Drug prescribing error [Unknown]

NARRATIVE: CASE EVENT DATE: 2014
